FAERS Safety Report 10045831 (Version 2)
Quarter: 2014Q2

REPORT INFORMATION
  Report Type: Report from Study
  Country: TR (occurrence: TR)
  Receive Date: 20140328
  Receipt Date: 20140430
  Transmission Date: 20141212
  Serious: Yes (Hospitalization)
  Sender: FDA-Public Use
  Company Number: TR-ABBVIE-14P-161-1217484-00

PATIENT
  Age: 40 Year
  Sex: Female
  Weight: 69 kg

DRUGS (2)
  1. HUMIRA [Suspect]
     Indication: ANKYLOSING SPONDYLITIS
     Route: 058
     Dates: start: 20131105, end: 20140211
  2. HUMIRA [Suspect]
     Route: 058
     Dates: start: 20140415

REACTIONS (2)
  - Axillary mass [Recovered/Resolved]
  - Axillary pain [Recovered/Resolved]
